FAERS Safety Report 11600300 (Version 1)
Quarter: 2015Q4

REPORT INFORMATION
  Report Type: Spontaneous
  Country: US (occurrence: US)
  Receive Date: 20151006
  Receipt Date: 20151006
  Transmission Date: 20160304
  Serious: No
  Sender: FDA-Public Use
  Company Number: US-AMGEN-USASP2014091615

PATIENT
  Age: 73 Year
  Sex: Female

DRUGS (3)
  1. ATENOLOL. [Concomitant]
     Active Substance: ATENOLOL
  2. METFORMIN [Concomitant]
     Active Substance: METFORMIN HYDROCHLORIDE
  3. PROLIA [Suspect]
     Active Substance: DENOSUMAB
     Indication: OSTEOPOROSIS POSTMENOPAUSAL
     Dosage: UNK
     Route: 065
     Dates: start: 20141031

REACTIONS (7)
  - Blood glucose increased [Unknown]
  - Chills [Unknown]
  - Asthenia [Unknown]
  - Headache [Unknown]
  - Blood pressure increased [Unknown]
  - Dizziness [Unknown]
  - Hot flush [Unknown]
